FAERS Safety Report 9386201 (Version 1)
Quarter: 2013Q3

REPORT INFORMATION
  Report Type: Spontaneous
  Country: GB (occurrence: GB)
  Receive Date: 20130708
  Receipt Date: 20130708
  Transmission Date: 20140515
  Serious: Yes (Hospitalization)
  Sender: FDA-Public Use
  Company Number: GB-ROCHE-1245564

PATIENT
  Age: 45 Year
  Sex: Male
  Weight: 107.2 kg

DRUGS (1)
  1. MABTHERA [Suspect]
     Indication: B-CELL LYMPHOMA
     Route: 042
     Dates: start: 20130531, end: 20130531

REACTIONS (1)
  - Capillary leak syndrome [Recovering/Resolving]
